FAERS Safety Report 9211726 (Version 1)
Quarter: 2013Q2

REPORT INFORMATION
  Report Type: Spontaneous
  Country: US (occurrence: US)
  Receive Date: 20130404
  Receipt Date: 20130404
  Transmission Date: 20140414
  Serious: No
  Sender: FDA-Public Use
  Company Number: US-AMGEN-USASP2013014852

PATIENT
  Age: 59 Year
  Sex: Female
  Weight: 87.53 kg

DRUGS (2)
  1. ENBREL [Suspect]
     Indication: PSORIASIS
     Dosage: 50 MG, 2 TIMES/WK
     Route: 058
     Dates: start: 20130128, end: 20130228
  2. TRIAMCINOLONE [Concomitant]
     Indication: PSORIASIS
     Dosage: 1 %, BID
     Route: 061
     Dates: start: 20110204

REACTIONS (5)
  - Erythema [Not Recovered/Not Resolved]
  - Local swelling [Not Recovered/Not Resolved]
  - Injection site rash [Recovered/Resolved]
  - Injection site erythema [Unknown]
  - Injection site swelling [Unknown]
